FAERS Safety Report 8925885 (Version 1)
Quarter: 2012Q4

REPORT INFORMATION
  Report Type: 
  Country: US (occurrence: US)
  Receive Date: 20121126
  Receipt Date: 20121126
  Transmission Date: 20130627
  Serious: Yes (Hospitalization, Other)
  Sender: FDA-Public Use
  Company Number: US-ROCHE-1146514

PATIENT
  Age: 43 Year
  Sex: Female
  Weight: 97.3 kg

DRUGS (7)
  1. RITUXAN [Suspect]
     Indication: RHEUMATOID ARTHRITIS
     Route: 042
     Dates: start: 20120511, end: 20121016
  2. METHOTREXATE [Concomitant]
     Indication: RHEUMATOID ARTHRITIS
     Route: 048
  3. VITAMIN D2 [Concomitant]
     Indication: VITAMIN D DEFICIENCY
     Route: 048
  4. NORCO [Concomitant]
     Indication: PAIN
     Route: 048
  5. FOLIC ACID [Concomitant]
     Route: 048
  6. WARFARIN [Concomitant]
     Indication: THROMBOSIS PROPHYLAXIS
     Route: 048
  7. LEVETIRACETAM [Concomitant]

REACTIONS (14)
  - Type IV hypersensitivity reaction [Unknown]
  - Rash [Unknown]
  - Blood pressure decreased [Unknown]
  - Urticaria [Unknown]
  - Anxiety [Unknown]
  - Dyspnoea [Recovered/Resolved]
  - Infusion related reaction [Unknown]
  - Vomiting [Recovered/Resolved with Sequelae]
  - Urticaria [Recovered/Resolved]
  - Hypotension [Recovered/Resolved]
  - Tachycardia [Recovered/Resolved]
  - Pruritus generalised [Unknown]
  - Flushing [Unknown]
  - Erythema [Unknown]
